FAERS Safety Report 13491976 (Version 3)
Quarter: 2017Q2

REPORT INFORMATION
  Report Type: Spontaneous
  Country: US (occurrence: US)
  Receive Date: 20170427
  Receipt Date: 20170516
  Transmission Date: 20170830
  Serious: Yes (Other)
  Sender: FDA-Public Use
  Company Number: US-009507513-1704USA009159

PATIENT
  Sex: Female

DRUGS (3)
  1. BRIDION [Suspect]
     Active Substance: SUGAMMADEX
     Indication: NEUROMUSCULAR BLOCKADE REVERSAL
     Dosage: 100 MG/ML, 2 ML ONCE
     Route: 042
     Dates: start: 201703, end: 201703
  2. ZEMURON [Suspect]
     Active Substance: ROCURONIUM BROMIDE
     Dosage: UNK
     Dates: start: 2017
  3. BRIDION [Suspect]
     Active Substance: SUGAMMADEX
     Dosage: 100 MG/ML, ADDITIONAL 1 ML ONCE
     Route: 042
     Dates: start: 201703, end: 201703

REACTIONS (4)
  - Asthenia [Recovered/Resolved]
  - Drug ineffective [Unknown]
  - Movement disorder [Recovered/Resolved]
  - Tidal volume decreased [Recovered/Resolved]

NARRATIVE: CASE EVENT DATE: 201703
